FAERS Safety Report 15608022 (Version 3)
Quarter: 2019Q1

REPORT INFORMATION
  Report Type: Report from Study
  Country: IT (occurrence: IT)
  Receive Date: 20181112
  Receipt Date: 20190103
  Transmission Date: 20190417
  Serious: Yes (Life-Threatening)
  Sender: FDA-Public Use
  Company Number: IT-TEVA-2018-IT-974434

PATIENT
  Age: 55 Year
  Sex: Female

DRUGS (6)
  1. KETOPROFEN SODIUM [Suspect]
     Active Substance: KETOPROFEN
     Dosage: 80 MILLIGRAM DAILY;
     Route: 048
     Dates: start: 20180621, end: 20180621
  2. IMODIUM [Concomitant]
     Active Substance: LOPERAMIDE HYDROCHLORIDE
     Route: 065
  3. TARGIN 5 MG/2,5MG COMPRESSE A RILASCIO PROLUNGATO [Suspect]
     Active Substance: NALOXONE HYDROCHLORIDE\OXYCODONE HYDROCHLORIDE
     Indication: INTERVERTEBRAL DISC PROTRUSION
     Dosage: 1 DOSAGE FORMS DAILY;
     Route: 048
  4. LYRICA [Suspect]
     Active Substance: PREGABALIN
     Dosage: 1 DOSAGE FORMS DAILY;
     Route: 048
  5. DEPALGOS 20 MG + 325 MG COMPRESSE RIVESTITE CON FILM [Suspect]
     Active Substance: ACETAMINOPHEN\OXYCODONE HYDROCHLORIDE
     Indication: INTERVERTEBRAL DISC PROTRUSION
     Dosage: 2 DOSAGE FORMS DAILY;
     Route: 048
  6. CIPROXIN 500?MG COMPRESSE RIVESTITE CON FILM [Concomitant]
     Active Substance: CIPROFLOXACIN
     Route: 065

REACTIONS (2)
  - Sopor [Recovered/Resolved]
  - Drug abuse [Recovered/Resolved]

NARRATIVE: CASE EVENT DATE: 20180621
